FAERS Safety Report 8820762 (Version 2)
Quarter: 2012Q4

REPORT INFORMATION
  Report Type: 
  Country: US (occurrence: US)
  Receive Date: 20121002
  Receipt Date: 20121022
  Transmission Date: 20130627
  Serious: Yes (Other)
  Sender: FDA-Public Use
  Company Number: US-GLAXOSMITHKLINE-A0995563A

PATIENT
  Age: 49 Year
  Sex: Female

DRUGS (1)
  1. ALLI [Suspect]
     Indication: WEIGHT LOSS DIET
     Route: 048

REACTIONS (5)
  - Intestinal obstruction [Not Recovered/Not Resolved]
  - Steatorrhoea [Recovered/Resolved]
  - Drug ineffective [Unknown]
  - Medication residue [Unknown]
  - Product quality issue [Unknown]
